FAERS Safety Report 9943994 (Version 1)
Quarter: 2014Q1

REPORT INFORMATION
  Report Type: Spontaneous
  Country: FR (occurrence: FR)
  Receive Date: 20140303
  Receipt Date: 20140303
  Transmission Date: 20141002
  Serious: Yes (Hospitalization, Other)
  Sender: FDA-Public Use
  Company Number: FR-GILEAD-2014-0095368

PATIENT
  Age: 50 Year
  Sex: Male

DRUGS (10)
  1. VIREAD [Suspect]
     Indication: HIV INFECTION
     Dosage: 1 DF, QD
     Route: 048
     Dates: start: 20111017, end: 20140110
  2. VIDEX [Suspect]
     Indication: HIV INFECTION
     Dosage: 1 DF, QD
     Route: 048
     Dates: start: 20111017, end: 20140110
  3. NORVIR [Suspect]
     Indication: HIV INFECTION
     Dosage: 2 DF, QD
     Route: 048
     Dates: start: 20040526, end: 20140110
  4. APTIVUS [Suspect]
     Indication: HIV INFECTION
     Dosage: 2 DF, QD
     Route: 048
     Dates: start: 20111017, end: 20140110
  5. DOLUTEGRAVIR [Suspect]
     Indication: HIV INFECTION
     Dosage: 2 DF, QD
     Route: 048
     Dates: start: 20110117, end: 20140110
  6. BACTRIM [Concomitant]
     Indication: PROPHYLAXIS
     Dosage: UNK
     Dates: start: 20060114, end: 20140110
  7. ZYPREXA [Concomitant]
     Indication: ANXIETY
     Dosage: UNK
     Dates: start: 20110516, end: 20131230
  8. CRESTOR [Concomitant]
     Indication: DYSLIPIDAEMIA
     Dosage: UNK
     Dates: start: 20130705, end: 20131230
  9. CRESTOR [Concomitant]
     Dosage: UNK
     Dates: start: 20100429, end: 20130218
  10. PARIET [Concomitant]

REACTIONS (2)
  - Nodular regenerative hyperplasia [Unknown]
  - Hepatitis [Recovered/Resolved]
